FAERS Safety Report 22233624 (Version 1)
Quarter: 2023Q2

REPORT INFORMATION
  Report Type: Spontaneous
  Country: US (occurrence: None)
  Receive Date: 20230420
  Receipt Date: 20230420
  Transmission Date: 20230721
  Serious: No
  Sender: FDA-Public Use
  Company Number: US-ROCHE-3035170

PATIENT
  Sex: Male

DRUGS (2)
  1. ESBRIET [Suspect]
     Active Substance: PIRFENIDONE
     Indication: Idiopathic pulmonary fibrosis
     Dosage: ONGOING: YES
     Route: 048
  2. ESBRIET [Suspect]
     Active Substance: PIRFENIDONE
     Dosage: ONGONIG: YES
     Route: 048
     Dates: start: 20220222

REACTIONS (4)
  - Gastrooesophageal reflux disease [Unknown]
  - Cough [Unknown]
  - Choking sensation [Unknown]
  - Secretion discharge [Unknown]
